FAERS Safety Report 26214897 (Version 1)
Quarter: 2025Q4

REPORT INFORMATION
  Report Type: Spontaneous
  Country: US (occurrence: US)
  Receive Date: 20251230
  Receipt Date: 20251230
  Transmission Date: 20260119
  Serious: Yes (Death, Hospitalization)
  Sender: ELI LILLY AND COMPANY
  Company Number: US-ELI_LILLY_AND_COMPANY-US202512030487

PATIENT

DRUGS (2)
  1. MOUNJARO [Suspect]
     Active Substance: TIRZEPATIDE
     Indication: Product used for unknown indication
     Dosage: UNK UNK, UNKNOWN
     Route: 065
     Dates: start: 202306, end: 202312
  2. OZEMPIC [Suspect]
     Active Substance: SEMAGLUTIDE
     Indication: Product used for unknown indication
     Dosage: UNK
     Dates: start: 202305, end: 202308

REACTIONS (7)
  - Intestinal obstruction [Fatal]
  - Vomiting [Fatal]
  - Nausea [Fatal]
  - Diarrhoea [Fatal]
  - Gastric hypomotility [Fatal]
  - Constipation [Fatal]
  - Abdominal pain [Fatal]

NARRATIVE: CASE EVENT DATE: 20230701
